FAERS Safety Report 9719213 (Version 1)
Quarter: 2013Q4

REPORT INFORMATION
  Report Type: Report from Study
  Country: PL (occurrence: PL)
  Receive Date: 20131127
  Receipt Date: 20131127
  Transmission Date: 20140711
  Serious: Yes (Hospitalization, Other)
  Sender: FDA-Public Use
  Company Number: PHHY2013PL132701

PATIENT
  Age: 56 Year
  Sex: Female
  Weight: 76.8 kg

DRUGS (7)
  1. EVEROLIMUS [Suspect]
     Indication: RENAL CANCER
     Dosage: 10 MG, QD
     Route: 048
     Dates: start: 20121022
  2. ROSUVASTATIN [Suspect]
     Route: 048
  3. RAMIPRIL [Concomitant]
     Indication: HYPERTENSION
     Dosage: 5 MG, QD
     Route: 048
     Dates: start: 201106
  4. INDAPAMID [Concomitant]
     Indication: HYPERTENSION
     Dosage: 1.5 MG, QD
     Route: 048
     Dates: start: 201106
  5. ENOXAPARIN [Concomitant]
     Indication: THROMBOSIS
     Dosage: 40 MG, QD
     Route: 058
     Dates: start: 201106
  6. ALPRAZOLAM [Concomitant]
     Indication: DEPRESSION
     Dosage: 0.5 MG, QD
     Route: 048
     Dates: start: 201107
  7. PAROXETINE [Concomitant]
     Indication: DEPRESSION
     Dosage: 20 MG, QD
     Route: 048
     Dates: start: 201107

REACTIONS (2)
  - Blood creatine phosphokinase increased [Recovered/Resolved]
  - Blood glucose increased [Unknown]
